FAERS Safety Report 6877246-6 (Version None)
Quarter: 2010Q3

REPORT INFORMATION
  Report Type: 
  Country: None (occurrence: None)
  Receive Date: 20100727
  Receipt Date: 20090810
  Transmission Date: 20110219
  Serious: No
  Sender: FDA-Public Use
  Company Number: US-ABBOTT-09P-163-0590566-00

PATIENT
  Sex: Male

DRUGS (8)
  1. SYNTHROID [Suspect]
     Indication: HYPOTHYROIDISM
     Dates: start: 20040101, end: 20090101
  2. SYNTHROID [Suspect]
     Dates: start: 20090801
  3. SYNTHROID [Suspect]
     Dates: start: 20040101, end: 20090101
  4. LIPITOR [Concomitant]
     Indication: BLOOD CHOLESTEROL INCREASED
  5. VITAMIN B-12 [Concomitant]
     Indication: PERNICIOUS ANAEMIA
     Route: 030
  6. MICARDIS [Concomitant]
     Indication: HYPERTENSION
  7. VITAMINS [Concomitant]
     Indication: PRODUCT USED FOR UNKNOWN INDICATION
  8. ASPIRIN [Concomitant]
     Indication: PRODUCT USED FOR UNKNOWN INDICATION

REACTIONS (1)
  - IDIOPATHIC URTICARIA [None]
